FAERS Safety Report 18628935 (Version 1)
Quarter: 2020Q4

REPORT INFORMATION
  Report Type: Spontaneous
  Country: US (occurrence: US)
  Receive Date: 20201217
  Receipt Date: 20201217
  Transmission Date: 20210114
  Serious: No
  Sender: FDA-Public Use
  Company Number: US-FERRINGPH-2020FE07113

PATIENT
  Age: 36 Year
  Sex: Female

DRUGS (1)
  1. MENOPUR [Suspect]
     Active Substance: FOLLITROPIN\LUTEINIZING HORMONE
     Indication: IN VITRO FERTILISATION
     Route: 065

REACTIONS (3)
  - Product packaging difficult to open [Recovered/Resolved]
  - Skin laceration [Recovered/Resolved]
  - Product container issue [Recovered/Resolved]

NARRATIVE: CASE EVENT DATE: 20200203
